FAERS Safety Report 25654079 (Version 1)
Quarter: 2025Q3

REPORT INFORMATION
  Report Type: Spontaneous
  Country: US (occurrence: US)
  Receive Date: 20250807
  Receipt Date: 20250807
  Transmission Date: 20251020
  Serious: Yes (Life-Threatening, Hospitalization)
  Sender: MYLAN
  Company Number: US-MYLANLABS-2025M1065569

PATIENT
  Age: 50 Year
  Sex: Male

DRUGS (16)
  1. FOMEPIZOLE [Suspect]
     Active Substance: FOMEPIZOLE
     Indication: Systemic toxicity
  2. FOMEPIZOLE [Suspect]
     Active Substance: FOMEPIZOLE
     Route: 065
  3. FOMEPIZOLE [Suspect]
     Active Substance: FOMEPIZOLE
     Route: 065
  4. FOMEPIZOLE [Suspect]
     Active Substance: FOMEPIZOLE
  5. NALOXONE [Concomitant]
     Active Substance: NALOXONE
     Indication: Product used for unknown indication
  6. NALOXONE [Concomitant]
     Active Substance: NALOXONE
     Route: 065
  7. NALOXONE [Concomitant]
     Active Substance: NALOXONE
     Route: 065
  8. NALOXONE [Concomitant]
     Active Substance: NALOXONE
  9. LORAZEPAM [Concomitant]
     Active Substance: LORAZEPAM
     Indication: Seizure like phenomena
  10. LORAZEPAM [Concomitant]
     Active Substance: LORAZEPAM
     Route: 065
  11. LORAZEPAM [Concomitant]
     Active Substance: LORAZEPAM
     Route: 065
  12. LORAZEPAM [Concomitant]
     Active Substance: LORAZEPAM
  13. LEVETIRACETAM [Concomitant]
     Active Substance: LEVETIRACETAM
     Indication: Seizure like phenomena
  14. LEVETIRACETAM [Concomitant]
     Active Substance: LEVETIRACETAM
     Route: 065
  15. LEVETIRACETAM [Concomitant]
     Active Substance: LEVETIRACETAM
     Route: 065
  16. LEVETIRACETAM [Concomitant]
     Active Substance: LEVETIRACETAM

REACTIONS (1)
  - Drug ineffective [Unknown]
